FAERS Safety Report 22944189 (Version 2)
Quarter: 2025Q1

REPORT INFORMATION
  Report Type: Spontaneous
  Country: US (occurrence: US)
  Receive Date: 20230914
  Receipt Date: 20250303
  Transmission Date: 20250409
  Serious: No
  Sender: SANOFI AVENTIS
  Company Number: US-SANOFI-01757419

PATIENT
  Age: 31 Year
  Sex: Female

DRUGS (1)
  1. DUPIXENT [Suspect]
     Active Substance: DUPILUMAB
     Indication: Dermatitis atopic
     Dosage: 300 MG, QOW
     Route: 058

REACTIONS (5)
  - COVID-19 [Unknown]
  - Blister [Unknown]
  - Condition aggravated [Unknown]
  - Maternal exposure during pregnancy [Unknown]
  - Eczema [Unknown]

NARRATIVE: CASE EVENT DATE: 20230906
